FAERS Safety Report 4850630-8 (Version None)
Quarter: 2005Q4

REPORT INFORMATION
  Report Type: 
  Country: None (occurrence: None)
  Receive Date: 20051208
  Receipt Date: 20051129
  Transmission Date: 20060501
  Serious: Yes (Other)
  Sender: FDA-Public Use
  Company Number: GB-2005-025377

PATIENT
  Age: 80 Year
  Sex: Female

DRUGS (5)
  1. SOTALOL HCL [Suspect]
     Indication: ARRHYTHMIA
     Dosage: 40 MG, 3X/DAY, ORAL
     Route: 048
     Dates: start: 20030827
  2. ZITHROMAX [Suspect]
     Indication: LOWER RESPIRATORY TRACT INFECTION
     Dosage: 250 MG, 2X/DAY, ORAL
     Route: 048
     Dates: start: 20050706, end: 20050708
  3. ATORVASTATIN CALCIUM [Suspect]
     Indication: BLOOD CHOLESTEROL INCREASED
     Dosage: 20 MG, BED 1, ORAL
     Route: 048
     Dates: start: 20050429
  4. BENDROFLUAZIDE                  (BENDROFLUMETHIAZIDE) [Concomitant]
  5. GAVISCON ADVANCE         (SODIUM ALGINATE, POTASSIUM BICARBONATE) [Concomitant]

REACTIONS (5)
  - CHEST PAIN [None]
  - DRUG INTERACTION [None]
  - DRUG TOXICITY [None]
  - MYALGIA [None]
  - MYOPATHY [None]
